FAERS Safety Report 8230371-X (Version None)
Quarter: 2012Q1

REPORT INFORMATION
  Report Type: 
  Country: None (occurrence: None)
  Receive Date: 20120322
  Receipt Date: 20120322
  Transmission Date: 20120608
  Serious: No
  Sender: FDA-Public Use
  Company Number: None

PATIENT
  Sex: Female
  Weight: 92.5338 kg

DRUGS (2)
  1. LATANOPROST [Suspect]
     Indication: GLAUCOMA
     Dosage: 1 GTT OP EYES
     Route: 047
     Dates: start: 20120101, end: 20120201
  2. XALATAN [Concomitant]

REACTIONS (1)
  - INSTILLATION SITE PAIN [None]
